FAERS Safety Report 24908771 (Version 3)
Quarter: 2025Q4

REPORT INFORMATION
  Report Type: Report from Study
  Country: MX (occurrence: MX)
  Receive Date: 20250131
  Receipt Date: 20251209
  Transmission Date: 20260118
  Serious: Yes (Other)
  Sender: TAKEDA
  Company Number: MX-TAKEDA-2025TUS009565

PATIENT
  Age: 45 Year
  Sex: Male

DRUGS (2)
  1. VEDOLIZUMAB [Suspect]
     Active Substance: VEDOLIZUMAB
     Indication: Colitis ulcerative
     Dosage: 108 MILLIGRAM, Q2WEEKS
     Dates: start: 20240916
  2. MESALAMINE [Suspect]
     Active Substance: MESALAMINE
     Indication: Product used for unknown indication
     Dosage: UNK

REACTIONS (8)
  - Colitis ulcerative [Unknown]
  - Haematochezia [Not Recovered/Not Resolved]
  - Therapy non-responder [Unknown]
  - Illness [Unknown]
  - Abdominal pain [Not Recovered/Not Resolved]
  - Weight decreased [Unknown]
  - Weight increased [Not Recovered/Not Resolved]
  - Inappropriate schedule of product administration [Recovered/Resolved]

NARRATIVE: CASE EVENT DATE: 20250124
